FAERS Safety Report 15364027 (Version 2)
Quarter: 2018Q4

REPORT INFORMATION
  Report Type: Spontaneous
  Country: US (occurrence: US)
  Receive Date: 20180908
  Receipt Date: 20181019
  Transmission Date: 20190204
  Serious: Yes (Death, Other)
  Sender: FDA-Public Use
  Company Number: US-AMGEN-USASP2018110706

PATIENT
  Age: 70 Year
  Sex: Female
  Weight: 64.4 kg

DRUGS (4)
  1. CYTOXAN [Suspect]
     Active Substance: CYCLOPHOSPHAMIDE
     Indication: PLASMA CELL LEUKAEMIA
     Dosage: 500 MG, QWK FOR 3 WEEKS AND 1 WEEK OFF
     Route: 048
     Dates: end: 20180723
  2. KYPROLIS [Suspect]
     Active Substance: CARFILZOMIB
     Indication: PLASMA CELL LEUKAEMIA
     Dosage: 20 MG/M2 (36 MG), ON DAYS 1, 2, 8, 9, 15 AND 16 Q 28 DAYS
     Route: 042
     Dates: start: 20180611
  3. KYPROLIS [Suspect]
     Active Substance: CARFILZOMIB
     Dosage: 36 MG/M2 (64MG), ON DAYS 1, 2, 8, 9, 15 AND 16 Q 28 DAYS
     Route: 042
     Dates: end: 20180724
  4. DECADRON [Suspect]
     Active Substance: DEXAMETHASONE
     Indication: PLASMA CELL LEUKAEMIA
     Dosage: 20 MG, UNK
     Route: 065
     Dates: end: 20180730

REACTIONS (4)
  - Back pain [Unknown]
  - Off label use [Unknown]
  - Cardio-respiratory arrest [Fatal]
  - Plasma cell leukaemia [Fatal]

NARRATIVE: CASE EVENT DATE: 2018
